FAERS Safety Report 14507782 (Version 1)
Quarter: 2018Q1

REPORT INFORMATION
  Report Type: Spontaneous
  Country: US (occurrence: US)
  Receive Date: 20180208
  Receipt Date: 20180208
  Transmission Date: 20180509
  Serious: Yes (Other)
  Sender: FDA-Public Use
  Company Number: US-NAPPMUNDI-USA-2018-0142273

PATIENT
  Age: 83 Year
  Sex: Female

DRUGS (3)
  1. BUPRENORPHINE TRANSDERMAL PATCH (SIMILAR TO NDA 21-306) [Suspect]
     Active Substance: BUPRENORPHINE
     Indication: WRIST FRACTURE
     Dosage: 20 MCG/HR, WEEKLY
     Route: 062
     Dates: start: 201706
  2. BUPRENORPHINE TRANSDERMAL PATCH (SIMILAR TO NDA 21-306) [Suspect]
     Active Substance: BUPRENORPHINE
     Indication: PAIN
  3. BUPRENORPHINE TRANSDERMAL PATCH (SIMILAR TO NDA 21-306) [Suspect]
     Active Substance: BUPRENORPHINE
     Indication: INTERVERTEBRAL DISC DEGENERATION
     Dosage: 20 MCG/HR, WEEKLY
     Route: 062

REACTIONS (9)
  - Pain [Unknown]
  - Drug withdrawal syndrome [Unknown]
  - Hypertension [Unknown]
  - Drug effect decreased [Unknown]
  - Overdose [Unknown]
  - Dermatitis contact [Not Recovered/Not Resolved]
  - Application site dryness [Unknown]
  - Malaise [Unknown]
  - Application site erythema [Unknown]

NARRATIVE: CASE EVENT DATE: 201710
